FAERS Safety Report 21452739 (Version 2)
Quarter: 2022Q4

REPORT INFORMATION
  Report Type: Report from Study
  Country: JP (occurrence: None)
  Receive Date: 20221013
  Receipt Date: 20221021
  Transmission Date: 20230112
  Serious: Yes (Hospitalization)
  Sender: FDA-Public Use
  Company Number: JP-ROCHE-3141234

PATIENT
  Age: 75 Year
  Sex: Male
  Weight: 66.4 kg

DRUGS (13)
  1. TRASTUZUMAB [Suspect]
     Active Substance: TRASTUZUMAB
     Indication: Bile duct cancer
     Dosage: DAY 1 OF CYCLE 1 AND 4
     Route: 041
     Dates: start: 20220513, end: 20220513
  2. TRASTUZUMAB [Suspect]
     Active Substance: TRASTUZUMAB
     Dosage: DATE OF LAST DOSE PRIOR TO EVENT ONSET ON 24/JUN/2022. DAY 1 OF EACH CYCLE.
     Route: 041
  3. TRASTUZUMAB [Suspect]
     Active Substance: TRASTUZUMAB
     Dosage: DAY 1 OF EACH CYCLE
     Route: 041
     Dates: start: 20220513
  4. TUCATINIB [Suspect]
     Active Substance: TUCATINIB
     Indication: Bile duct cancer
     Dosage: DAYS 1-21 OF 21 DAY CYCLE
     Route: 048
     Dates: start: 20220513, end: 20220708
  5. TUCATINIB [Suspect]
     Active Substance: TUCATINIB
     Dosage: ON 28/SEP//2022, DATE OF LAST DOSE BEFORE SAE).
     Route: 048
     Dates: start: 20220513
  6. AMLODIPINE BESYLATE [Concomitant]
     Active Substance: AMLODIPINE BESYLATE
  7. MAGNESIUM OXIDE [Concomitant]
     Active Substance: MAGNESIUM OXIDE
  8. INSULIN LISPRO [Concomitant]
     Active Substance: INSULIN LISPRO
  9. ACETAMINOPHEN [Concomitant]
     Active Substance: ACETAMINOPHEN
     Dates: start: 20220524
  10. LOPERAMIDE HYDROCHLORIDE [Concomitant]
     Active Substance: LOPERAMIDE HYDROCHLORIDE
     Dates: start: 20220528
  11. INSULIN GLARGINE [Concomitant]
     Active Substance: INSULIN GLARGINE
  12. ESOMEPRAZOLE MAGNESIUM [Concomitant]
     Active Substance: ESOMEPRAZOLE MAGNESIUM
  13. KETOPROFEN [Concomitant]
     Active Substance: KETOPROFEN
     Dates: start: 20220909

REACTIONS (2)
  - Cholangitis [Recovered/Resolved]
  - Haemobilia [Not Recovered/Not Resolved]

NARRATIVE: CASE EVENT DATE: 20220708
